FAERS Safety Report 15877067 (Version 1)
Quarter: 2019Q1

REPORT INFORMATION
  Report Type: Spontaneous
  Country: FR (occurrence: FR)
  Receive Date: 20190128
  Receipt Date: 20190128
  Transmission Date: 20190417
  Serious: Yes (Hospitalization)
  Sender: FDA-Public Use
  Company Number: FR-SA-2019SA015385

PATIENT
  Sex: Male

DRUGS (4)
  1. BUPRENORPHINE. [Suspect]
     Active Substance: BUPRENORPHINE
     Indication: DRUG USE DISORDER
     Dosage: 16 MG, UNK
     Route: 042
     Dates: start: 2013
  2. RITALINE [Suspect]
     Active Substance: METHYLPHENIDATE HYDROCHLORIDE
     Indication: DRUG USE DISORDER
     Route: 042
     Dates: start: 2018
  3. STILNOX [Suspect]
     Active Substance: ZOLPIDEM TARTRATE
     Indication: DRUG USE DISORDER
     Dosage: 1 DF, UNK
     Route: 042
     Dates: start: 2003
  4. KETAMINE [Suspect]
     Active Substance: KETAMINE
     Indication: DRUG USE DISORDER
     Route: 055
     Dates: start: 2018

REACTIONS (3)
  - Condition aggravated [Not Recovered/Not Resolved]
  - Dermo-hypodermitis [Recovering/Resolving]
  - Drug use disorder [Not Recovered/Not Resolved]

NARRATIVE: CASE EVENT DATE: 2003
